FAERS Safety Report 7275204-3 (Version None)
Quarter: 2011Q1

REPORT INFORMATION
  Report Type: 
  Country: None (occurrence: None)
  Receive Date: 20110204
  Receipt Date: 20110127
  Transmission Date: 20110831
  Serious: Yes (Other)
  Sender: FDA-Public Use
  Company Number: PHHY2011FR06556

PATIENT
  Age: 77 Year
  Sex: Male

DRUGS (1)
  1. EXELON [Suspect]
     Dosage: 9.5 MG / 24 H
     Route: 062
     Dates: start: 20091101, end: 20100303

REACTIONS (3)
  - URTICARIA [None]
  - TOXIC SKIN ERUPTION [None]
  - SKIN LESION [None]
